FAERS Safety Report 8895609 (Version 2)
Quarter: 2015Q2

REPORT INFORMATION
  Report Type: Report from Study
  Country: US (occurrence: US)
  Receive Date: 20121108
  Receipt Date: 20150420
  Transmission Date: 20150821
  Serious: Yes (Death, Hospitalization)
  Sender: FDA-Public Use
  Company Number: US-ROCHE-1130716

PATIENT
  Sex: Female

DRUGS (15)
  1. RITUXAN [Suspect]
     Active Substance: RITUXIMAB
     Indication: FACTOR VIII DEFICIENCY
     Dosage: 375 MG/M2, RECEIVED ON 26/NOV/2003, 03/DEC/2003, 10/DEC/2003
     Route: 042
     Dates: start: 20031120
  2. TYLENOL [Concomitant]
     Active Substance: ACETAMINOPHEN
     Dosage: RECEIVED ON 26/NOV/2003
     Route: 048
  3. PROTONIX (UNITED STATES) [Concomitant]
     Route: 048
  4. BENADRYL [Concomitant]
     Active Substance: DIPHENHYDRAMINE HYDROCHLORIDE
     Dosage: RECEIVED ON  03/DEC/2003
     Route: 048
  5. FLUCONAZOLE. [Concomitant]
     Active Substance: FLUCONAZOLE
     Route: 042
     Dates: start: 20031129
  6. BENADRYL [Concomitant]
     Active Substance: DIPHENHYDRAMINE HYDROCHLORIDE
     Dosage: RECEIVED ON 10/DEC/2003
     Route: 042
  7. PREDNISONE. [Concomitant]
     Active Substance: PREDNISONE
     Route: 048
  8. HYDROXYZINE [Concomitant]
     Active Substance: HYDROXYZINE\HYDROXYZINE HYDROCHLORIDE
     Route: 048
  9. RITUXAN [Suspect]
     Active Substance: RITUXIMAB
     Indication: OFF LABEL USE
     Route: 042
  10. VASOTEC [Concomitant]
     Active Substance: ENALAPRIL MALEATE
     Route: 048
  11. TYLENOL [Concomitant]
     Active Substance: ACETAMINOPHEN
     Dosage: RECEIVED ON  03/DEC/2003, 10/DEC/2003
     Route: 048
  12. RITUXAN [Suspect]
     Active Substance: RITUXIMAB
     Indication: COAGULOPATHY
  13. BENADRYL [Concomitant]
     Active Substance: DIPHENHYDRAMINE HYDROCHLORIDE
     Dosage: RECEIVED ON 26/NOV/2003
     Route: 042
  14. FE-TINIC [Concomitant]
     Active Substance: VITAMINS
     Route: 048
  15. DOCUSATE SODIUM. [Concomitant]
     Active Substance: DOCUSATE SODIUM
     Route: 048

REACTIONS (20)
  - Haematuria [Unknown]
  - Dry mouth [Unknown]
  - Pyrexia [Unknown]
  - Diarrhoea [Unknown]
  - Candida infection [Unknown]
  - Hyperhidrosis [Unknown]
  - Constipation [Unknown]
  - Fatigue [Unknown]
  - Peripheral swelling [Unknown]
  - Vomiting [Unknown]
  - Death [Fatal]
  - Confusional state [Unknown]
  - Dyspnoea [Unknown]
  - Anxiety [Unknown]
  - Anaemia [Unknown]
  - Cough [Unknown]
  - Hot flush [Unknown]
  - Decreased appetite [Unknown]
  - Nausea [Unknown]
  - Contusion [Unknown]
